FAERS Safety Report 7332617-9 (Version None)
Quarter: 2011Q1

REPORT INFORMATION
  Report Type: 
  Country: None (occurrence: None)
  Receive Date: 20110304
  Receipt Date: 20110228
  Transmission Date: 20110831
  Serious: Yes (Death)
  Sender: FDA-Public Use
  Company Number: GR-PFIZER INC-2011042626

PATIENT
  Age: 74 Year
  Sex: Male

DRUGS (3)
  1. FLUCONAZOLE [Suspect]
     Indication: FUNGAL INFECTION
  2. VORICONAZOLE [Suspect]
     Indication: FUNGAL INFECTION
  3. ANIDULAFUNGIN [Suspect]
     Indication: FUNGAL INFECTION

REACTIONS (3)
  - MULTI-ORGAN FAILURE [None]
  - SEPTIC SHOCK [None]
  - DRUG INEFFECTIVE [None]
